FAERS Safety Report 7603169-0 (Version None)
Quarter: 2011Q3

REPORT INFORMATION
  Report Type: 
  Country: None (occurrence: None)
  Receive Date: 20110701
  Receipt Date: 20110621
  Transmission Date: 20111222
  Serious: Yes (Other)
  Sender: FDA-Public Use
  Company Number: 2011MA007940

PATIENT
  Age: 40 Year
  Sex: Female

DRUGS (2)
  1. DIAZEPAM [Suspect]
     Indication: HYPERVENTILATION
     Dosage: 15 MG; X1;
     Dates: start: 20110506
  2. TRAMADOL HCL [Suspect]
     Dosage: 50 MG; QID;
     Dates: start: 20110506

REACTIONS (3)
  - OLIGURIA [None]
  - SCLERAL DISCOLOURATION [None]
  - DYSPEPSIA [None]
